FAERS Safety Report 25249078 (Version 1)
Quarter: 2025Q2

REPORT INFORMATION
  Report Type: Report from Study
  Country: US (occurrence: US)
  Receive Date: 20250429
  Receipt Date: 20250429
  Transmission Date: 20250716
  Serious: Yes (Hospitalization, Other)
  Sender: TAKEDA
  Company Number: US-TAKEDA-2025TUS040297

PATIENT
  Age: 18 Year
  Sex: Male

DRUGS (4)
  1. RURIOCTOCOG ALFA PEGOL [Suspect]
     Active Substance: RURIOCTOCOG ALFA PEGOL
     Indication: Haemorrhage
     Dosage: 4350 INTERNATIONAL UNIT, QD
  2. RURIOCTOCOG ALFA PEGOL [Suspect]
     Active Substance: RURIOCTOCOG ALFA PEGOL
  3. RURIOCTOCOG ALFA PEGOL [Suspect]
     Active Substance: RURIOCTOCOG ALFA PEGOL
  4. HEMLIBRA [Suspect]
     Active Substance: EMICIZUMAB-KXWH
     Indication: Product used for unknown indication

REACTIONS (6)
  - Haemarthrosis [Unknown]
  - Muscle haemorrhage [Unknown]
  - Weight increased [Unknown]
  - Muscle injury [Unknown]
  - Intentional dose omission [Unknown]
  - Product use complaint [Unknown]
